FAERS Safety Report 8830981 (Version 4)
Quarter: 2012Q4

REPORT INFORMATION
  Report Type: 
  Country: US (occurrence: US)
  Receive Date: 20121008
  Receipt Date: 20121127
  Transmission Date: 20130627
  Serious: Yes (Hospitalization, Disabling, Other)
  Sender: FDA-Public Use
  Company Number: US-009507513-1206USA00823

PATIENT

DRUGS (6)
  1. FOSAMAX [Suspect]
     Indication: OSTEOPOROSIS
     Dosage: 10 mg, qam
     Route: 048
     Dates: start: 199903, end: 200802
  2. FOSAMAX [Suspect]
     Dosage: 70 mg, qw
     Dates: end: 200802
  3. ALENDRONATE SODIUM [Suspect]
     Indication: OSTEOPOROSIS
     Dosage: 70 mg, qw
     Route: 048
     Dates: start: 200802, end: 200806
  4. LISINOPRIL [Concomitant]
     Dosage: UNK
     Route: 048
     Dates: start: 1992
  5. CALCIUM (UNSPECIFIED) (+) VITAMIN D (UNSPECIFIED) [Concomitant]
     Dosage: 600 mg, UNK
     Dates: start: 1980
  6. OMEGA-3 MARINE TRIGLYCERIDES [Concomitant]
     Dosage: 1000 DF, UNK

REACTIONS (20)
  - Femur fracture [Not Recovered/Not Resolved]
  - Femur fracture [Unknown]
  - Closed fracture manipulation [Unknown]
  - Impaired healing [Unknown]
  - Humerus fracture [Unknown]
  - Myocardial infarction [Unknown]
  - Anaemia [Unknown]
  - Appendicectomy [Unknown]
  - Upper limb fracture [Unknown]
  - Fall [Unknown]
  - Face injury [Unknown]
  - Blood potassium abnormal [Unknown]
  - Limb injury [Unknown]
  - Blood glucose abnormal [Unknown]
  - Blood calcium abnormal [Unknown]
  - Hypertensive heart disease [Unknown]
  - Hypercholesterolaemia [Unknown]
  - Hysterectomy [Unknown]
  - Lacunar infarction [Unknown]
  - Arthralgia [Unknown]
